FAERS Safety Report 8231335-2 (Version None)
Quarter: 2012Q1

REPORT INFORMATION
  Report Type: 
  Country: None (occurrence: None)
  Receive Date: 20120323
  Receipt Date: 20120315
  Transmission Date: 20120608
  Serious: Yes (Other)
  Sender: FDA-Public Use
  Company Number: US-BAYER-2012-025850

PATIENT
  Age: 29 Year
  Sex: Female

DRUGS (1)
  1. MIRENA [Suspect]
     Indication: CONTRACEPTION
     Dosage: 20 MCG/24HR, CONT
     Route: 015
     Dates: start: 20120217, end: 20120224

REACTIONS (9)
  - HEADACHE [None]
  - EYE SWELLING [None]
  - NAUSEA [None]
  - SWELLING [None]
  - DYSPNOEA [None]
  - CHEST DISCOMFORT [None]
  - VOMITING [None]
  - BLOOD PRESSURE INCREASED [None]
  - ABDOMINAL DISCOMFORT [None]
